FAERS Safety Report 4823932-9 (Version None)
Quarter: 2005Q4

REPORT INFORMATION
  Report Type: 
  Country: None (occurrence: None)
  Receive Date: 20051109
  Receipt Date: 20051028
  Transmission Date: 20060501
  Serious: Yes (Other)
  Sender: FDA-Public Use
  Company Number: FR-SANOFI-SYNTHELABO-A01200507451

PATIENT
  Age: 72 Year
  Sex: Female

DRUGS (5)
  1. PLAVIX [Suspect]
     Indication: ENDARTERECTOMY
     Dosage: UNK
     Route: 048
  2. ELISOR [Suspect]
     Indication: HYPERCHOLESTEROLAEMIA
     Route: 048
     Dates: start: 20050614
  3. CELECTOL [Concomitant]
     Indication: DRUG USE FOR UNKNOWN INDICATION
     Dosage: UNK
     Route: 065
  4. FORTZAAR [Concomitant]
     Indication: DRUG USE FOR UNKNOWN INDICATION
     Dosage: UNK
     Route: 065
  5. CORTANCYL [Concomitant]
     Indication: DRUG USE FOR UNKNOWN INDICATION
     Dosage: UNK
     Route: 065

REACTIONS (5)
  - ALOPECIA [None]
  - EYE PAIN [None]
  - HEADACHE [None]
  - PAPILLOEDEMA [None]
  - URTICARIA [None]
